FAERS Safety Report 9592500 (Version 1)
Quarter: 2013Q4

REPORT INFORMATION
  Report Type: Report from Study
  Country: US (occurrence: US)
  Receive Date: 20131004
  Receipt Date: 20131004
  Transmission Date: 20140711
  Serious: Yes (Other)
  Sender: FDA-Public Use
  Company Number: US-JNJFOC-20130915841

PATIENT
  Age: 67 Year
  Sex: Female
  Weight: 98.88 kg

DRUGS (9)
  1. REMICADE [Suspect]
     Indication: RHEUMATOID ARTHRITIS
     Route: 042
  2. METHOTREXATE [Suspect]
     Indication: RHEUMATOID ARTHRITIS
     Dosage: 4 ONCE A WEEK
     Route: 048
     Dates: end: 201309
  3. VALACICLOVIR [Suspect]
     Indication: HERPES ZOSTER
     Route: 048
     Dates: start: 201309
  4. RECLAST [Suspect]
     Indication: OSTEOPOROSIS
     Route: 065
  5. AMITRIPTYLINE [Concomitant]
     Indication: SLEEP DISORDER
     Route: 048
  6. OMEPRAZOLE [Concomitant]
     Indication: GASTROOESOPHAGEAL REFLUX DISEASE
     Route: 048
  7. FOLIC ACID [Concomitant]
     Route: 048
  8. CALCIUM [Concomitant]
     Indication: BONE DISORDER
     Route: 048
  9. VITAMIN D W/ CALCIUM [Concomitant]
     Route: 065

REACTIONS (2)
  - Osteoporosis [Not Recovered/Not Resolved]
  - Herpes zoster [Not Recovered/Not Resolved]
